FAERS Safety Report 9408187 (Version 6)
Quarter: 2013Q4

REPORT INFORMATION
  Report Type: Report from Study
  Country: GB (occurrence: GB)
  Receive Date: 20130718
  Receipt Date: 20131120
  Transmission Date: 20140711
  Serious: Yes (Hospitalization, Other)
  Sender: FDA-Public Use
  Company Number: GB-CELGENEUS-167-C4047-13062451

PATIENT
  Age: 78 Year
  Sex: Male
  Weight: 88.7 kg

DRUGS (21)
  1. CC-4047 [Suspect]
     Indication: PLASMA CELL MYELOMA
     Dosage: 4 MILLIGRAM
     Route: 048
     Dates: start: 20120702
  2. CC-4047 [Suspect]
     Dosage: 4 MILLIGRAM
     Route: 048
     Dates: start: 20130603, end: 20130630
  3. CC-4047 [Suspect]
     Route: 048
     Dates: end: 20130705
  4. DEXAMETHASONE [Suspect]
     Indication: PLASMA CELL MYELOMA
     Dosage: 20 MILLIGRAM
     Route: 065
     Dates: start: 20120702
  5. DEXAMETHASONE [Suspect]
     Dosage: 20 MILLIGRAM
     Route: 065
     Dates: start: 20130603, end: 20130624
  6. DEXAMETHASONE [Suspect]
     Route: 065
     Dates: end: 20130705
  7. LANSOPRAZOLE [Concomitant]
     Indication: PROPHYLAXIS
     Dosage: 30 MILLIGRAM
     Route: 048
     Dates: start: 2007
  8. BONEFOS [Concomitant]
     Indication: PROPHYLAXIS
     Dosage: 1600 MILLIGRAM
     Route: 048
     Dates: start: 2007
  9. ACICLOVIR [Concomitant]
     Indication: PROPHYLAXIS
     Dosage: 800 MILLIGRAM
     Route: 048
     Dates: start: 2007
  10. ASPIRINE [Concomitant]
     Indication: THROMBOSIS PROPHYLAXIS
     Dosage: 75 MILLIGRAM
     Route: 048
     Dates: start: 2012, end: 20130525
  11. RAMIPRIL [Concomitant]
     Indication: HYPERTENSION
     Dosage: 10 MILLIGRAM
     Route: 048
     Dates: start: 2008
  12. BECONASE [Concomitant]
     Indication: SEASONAL ALLERGY
     Route: 045
     Dates: start: 2009
  13. LOPERAMIDE [Concomitant]
     Indication: DIARRHOEA
     Route: 048
     Dates: start: 2011
  14. PARACETAMOL [Concomitant]
     Indication: BACK PAIN
     Route: 048
     Dates: start: 2009
  15. BRINZOLAMIDE [Concomitant]
     Indication: GLAUCOMA
     Dosage: 2 DROPS
     Route: 061
     Dates: start: 2011
  16. CETRIZINE [Concomitant]
     Indication: SEASONAL ALLERGY
     Dosage: 10 MILLIGRAM
     Route: 048
     Dates: start: 2009
  17. CO-CODAMOL [Concomitant]
     Indication: PAIN
     Dosage: 8/500MG
     Route: 048
     Dates: start: 20120724
  18. FLUCLOXACILLIN [Concomitant]
     Indication: INFECTION
     Dosage: 2000 MILLIGRAM
     Route: 048
     Dates: start: 20130523, end: 20130530
  19. CHLORAMPHENICOL [Concomitant]
     Indication: POSTERIOR CAPSULE OPACIFICATION
     Dosage: 0.5%
     Route: 061
     Dates: start: 20130528
  20. CARBOCISTEINE [Concomitant]
     Indication: LOWER RESPIRATORY TRACT INFECTION
     Dosage: 750 MILLIGRAM
     Route: 048
     Dates: start: 20130604, end: 20130619
  21. AMOXICILLIN [Concomitant]
     Indication: PROPHYLAXIS
     Dosage: 1500 MILLIGRAM
     Route: 048
     Dates: start: 20130604, end: 20130610

REACTIONS (1)
  - Squamous cell carcinoma of head and neck [Recovered/Resolved with Sequelae]
